FAERS Safety Report 5158213-X (Version None)
Quarter: 2006Q4

REPORT INFORMATION
  Report Type: 
  Country: None (occurrence: None)
  Receive Date: 20061128
  Receipt Date: 20061116
  Transmission Date: 20070319
  Serious: Yes (Other)
  Sender: FDA-Public Use
  Company Number: PHBS2006NZ17897

PATIENT
  Age: 51 Year
  Sex: Female

DRUGS (3)
  1. LAMISIL [Suspect]
     Indication: NAIL TINEA
     Dosage: 250 MG/D
     Route: 048
     Dates: start: 19980101, end: 19980201
  2. ERYTHROMYCIN [Concomitant]
  3. AMOXICILLIN + CLAVULANATE POTASSIUM [Concomitant]

REACTIONS (1)
  - PHOTOSENSITIVITY REACTION [None]
